FAERS Safety Report 5648987-3 (Version None)
Quarter: 2008Q1

REPORT INFORMATION
  Report Type: 
  Country: None (occurrence: None)
  Receive Date: 20080303
  Receipt Date: 20080303
  Transmission Date: 20080703
  Serious: No
  Sender: FDA-Public Use
  Company Number: None

PATIENT
  Age: 69 Year
  Sex: Male
  Weight: 54.4316 kg

DRUGS (1)
  1. VYTORIN [Suspect]
     Indication: BLOOD CHOLESTEROL INCREASED
     Dosage: ONE-HALF TAB  DAILY PO
     Route: 048
     Dates: start: 20071025, end: 20071125

REACTIONS (4)
  - HYPOAESTHESIA [None]
  - LABORATORY TEST INTERFERENCE [None]
  - MUSCULAR WEAKNESS [None]
  - PAIN [None]
